FAERS Safety Report 7008859-9 (Version None)
Quarter: 2010Q3

REPORT INFORMATION
  Report Type: 
  Country: None (occurrence: None)
  Receive Date: 20100923
  Receipt Date: 20100914
  Transmission Date: 20110219
  Serious: Yes (Hospitalization)
  Sender: FDA-Public Use
  Company Number: US-BIOGENIDEC-2009BI041911

PATIENT
  Age: 55 Year
  Sex: Female
  Weight: 52 kg

DRUGS (3)
  1. TYSABRI [Suspect]
     Indication: MULTIPLE SCLEROSIS
     Dates: start: 20071129, end: 20080711
  2. TYSABRI [Suspect]
     Route: 042
     Dates: start: 20090109
  3. BACLOFEN [Concomitant]
     Indication: MUSCLE SPASTICITY
     Route: 037
     Dates: start: 19960101

REACTIONS (7)
  - BACK DISORDER [None]
  - COORDINATION ABNORMAL [None]
  - DEVICE FAILURE [None]
  - FATIGUE [None]
  - INTRACRANIAL HYPOTENSION [None]
  - MEDICAL DEVICE CHANGE [None]
  - SPINAL COLUMN STENOSIS [None]
